FAERS Safety Report 4566534-4 (Version None)
Quarter: 2005Q1

REPORT INFORMATION
  Report Type: 
  Country: None (occurrence: None)
  Receive Date: 20050201
  Receipt Date: 20050120
  Transmission Date: 20050727
  Serious: Yes (Hospitalization)
  Sender: FDA-Public Use
  Company Number: US-SANOFISYNTHELABO-F03200500013

PATIENT
  Age: 59 Year
  Sex: Male

DRUGS (4)
  1. CETUXIMAB [Suspect]
     Indication: COLON CANCER STAGE III
     Route: 042
     Dates: start: 20041025, end: 20041025
  2. LEUCOVORIN [Suspect]
     Indication: COLON CANCER STAGE III
     Dosage: 400 MG/M2 IV OVER 120 MINUTES ON DAY 1 OF A 2 WEEK CYCLE
     Route: 042
     Dates: start: 20041228, end: 20041228
  3. FLUOROURACIL [Suspect]
     Indication: COLON CANCER STAGE III
     Dosage: 400 MG MG/M2 IV PUSH D1, 2400 MG/M2 CONTINUOUS IV INFUSION OVER 46-48 HOURS OF A 2-WK CYCLE
     Route: 042
     Dates: start: 20041228, end: 20041229
  4. ELOXATIN [Suspect]
     Indication: COLON CANCER STAGE III
     Route: 042
     Dates: start: 20041228, end: 20041228

REACTIONS (4)
  - ACNE [None]
  - CEREBRAL ISCHAEMIA [None]
  - CEREBROVASCULAR ACCIDENT [None]
  - TREATMENT NONCOMPLIANCE [None]
